FAERS Safety Report 19890561 (Version 1)
Quarter: 2021Q3

REPORT INFORMATION
  Report Type: Spontaneous
  Country: FR (occurrence: FR)
  Receive Date: 20210927
  Receipt Date: 20210927
  Transmission Date: 20211014
  Serious: Yes (Hospitalization, Other)
  Sender: FDA-Public Use
  Company Number: FR-TAKEDA-SPV1-2007-03842

PATIENT
  Age: 38 Year
  Sex: Male
  Weight: 64 kg

DRUGS (5)
  1. DIPENTUM [Suspect]
     Active Substance: OLSALAZINE SODIUM
     Indication: COLITIS ULCERATIVE
     Dosage: 3000 MILLIGRAM, QD
     Route: 048
     Dates: start: 20070531, end: 20070717
  2. PENTASA [Suspect]
     Active Substance: MESALAMINE
     Indication: CROHN^S DISEASE
     Dosage: 2 GRAM, QD
     Route: 054
     Dates: start: 20070531, end: 20070717
  3. DELURSAN [Concomitant]
     Active Substance: URSODIOL
     Dosage: 500 MILLIGRAM, QD
     Route: 048
     Dates: start: 20210901, end: 20210906
  4. DELURSAN [Concomitant]
     Active Substance: URSODIOL
     Indication: CROHN^S DISEASE
     Dosage: 250 MILLIGRAM
  5. PENTASA [Suspect]
     Active Substance: MESALAMINE
     Indication: COLITIS ULCERATIVE
     Dosage: 4 GRAM, QD
     Route: 048
     Dates: start: 20210901, end: 20210906

REACTIONS (1)
  - Pancreatitis acute [Recovering/Resolving]

NARRATIVE: CASE EVENT DATE: 20070717
